FAERS Safety Report 8100070 (Version 3)
Quarter: 2012Q4

REPORT INFORMATION
  Report Type: Spontaneous
  Country: US (occurrence: None)
  Receive Date: 20110727
  Receipt Date: 20121102
  Transmission Date: 20130627
  Serious: Yes (Death)
  Sender: FDA-Public Use
  Company Number: 18280

PATIENT
  Age: 39 Year
  Sex: Female
  Weight: 64.41 kg

DRUGS (15)
  1. GLASSIA [Suspect]
     Indication: ALPHA-1 ANTI-TRYPSIN DEFICIENCY
     Dosage: WEEKLY, IV
     Route: 042
     Dates: start: 201104, end: 201106
  2. CHANTIX [Suspect]
     Indication: SMOKING CESSATION THERAPY
     Dosage: 1 MG, BID
  3. OXYGEN [Concomitant]
  4. ALBUTEROL NEBULIZER TREATMENTS [Concomitant]
  5. VENTOLIN HFA [Concomitant]
  6. PREDNISONE [Concomitant]
  7. ADVAIR DISKUS [Concomitant]
  8. DILTIAZEM [Concomitant]
  9. LORAZEPAM [Concomitant]
  10. PANTOPRAZOLE [Concomitant]
  11. MIRTAZAPINE [Concomitant]
  12. ALPRAZOLAM [Concomitant]
  13. DIGOXIN [Concomitant]
  14. SPIRIVA [Concomitant]
  15. CYCLOBENZAPRINE [Concomitant]

REACTIONS (11)
  - FLUID RETENTION [None]
  - WEIGHT INCREASED [None]
  - SWELLING [None]
  - OEDEMA [None]
  - CHRONIC OBSTRUCTIVE PULMONARY DISEASE [None]
  - CONDITION AGGRAVATED [None]
  - PNEUMONIA [None]
  - COR PULMONALE [None]
  - ABDOMINAL DISTENSION [None]
  - BLOOD CREATINE PHOSPHOKINASE INCREASED [None]
  - CARDIAC DISORDER [None]
